FAERS Safety Report 24782438 (Version 1)
Quarter: 2024Q4

REPORT INFORMATION
  Report Type: Spontaneous
  Country: US (occurrence: US)
  Receive Date: 20241227
  Receipt Date: 20241227
  Transmission Date: 20250115
  Serious: Yes (Life-Threatening, Hospitalization)
  Sender: DR REDDYS
  Company Number: None

PATIENT
  Age: 71 Year
  Sex: Female

DRUGS (3)
  1. HEPARIN [Suspect]
     Active Substance: HEPARIN SODIUM
     Indication: Product used for unknown indication
  2. METRONIDAZOLE [Concomitant]
     Active Substance: METRONIDAZOLE
     Indication: Clostridium difficile infection
     Route: 042
  3. FIDAXOMICIN [Concomitant]
     Active Substance: FIDAXOMICIN
     Indication: Clostridium difficile infection
     Route: 048

REACTIONS (1)
  - Heparin-induced thrombocytopenia [Unknown]
